FAERS Safety Report 9064672 (Version 1)
Quarter: 2013Q1

REPORT INFORMATION
  Report Type: Spontaneous
  Country: US (occurrence: US)
  Receive Date: 20130214
  Receipt Date: 20130214
  Transmission Date: 20140127
  Serious: No
  Sender: FDA-Public Use
  Company Number: US-009507513-1302USA001863

PATIENT
  Age: 82 None
  Sex: Male

DRUGS (1)
  1. INTRONA [Suspect]
     Indication: METASTATIC MALIGNANT MELANOMA
     Dosage: 10 MILLION IU, TIW
     Dates: start: 20120730, end: 20130123

REACTIONS (11)
  - Appetite disorder [Recovering/Resolving]
  - Dysstasia [Recovering/Resolving]
  - Anxiety [Recovered/Resolved]
  - Dry mouth [Recovered/Resolved]
  - Nausea [Not Recovered/Not Resolved]
  - Insomnia [Not Recovered/Not Resolved]
  - Confusional state [Recovering/Resolving]
  - Dehydration [Recovering/Resolving]
  - Rash pruritic [Not Recovered/Not Resolved]
  - Weight decreased [Recovering/Resolving]
  - Visual acuity reduced [Recovering/Resolving]
